FAERS Safety Report 6380881-5 (Version None)
Quarter: 2009Q3

REPORT INFORMATION
  Report Type: 
  Country: None (occurrence: None)
  Receive Date: 20090929
  Receipt Date: 20090922
  Transmission Date: 20100115
  Serious: Yes (Hospitalization)
  Sender: FDA-Public Use
  Company Number: A0809183A

PATIENT
  Sex: Female

DRUGS (2)
  1. ADVAIR DISKUS 100/50 [Suspect]
     Indication: BRONCHITIS
     Route: 055
     Dates: start: 20090901, end: 20090904
  2. AMOXICILLIN [Concomitant]

REACTIONS (1)
  - LOSS OF CONSCIOUSNESS [None]
